FAERS Safety Report 9989218 (Version 1)
Quarter: 2014Q1

REPORT INFORMATION
  Report Type: Report from Study
  Country: US (occurrence: US)
  Receive Date: 20140310
  Receipt Date: 20140310
  Transmission Date: 20141002
  Serious: Yes (Other)
  Sender: FDA-Public Use
  Company Number: US-ROCHE-1355224

PATIENT
  Age: 7 Year
  Sex: Female
  Weight: 24.2 kg

DRUGS (3)
  1. SOMATROPIN [Suspect]
     Indication: TURNER^S SYNDROME
     Route: 065
  2. PAXIL [Concomitant]
     Route: 065
  3. SYNTHROID [Concomitant]
     Indication: HYPOTHYROIDISM

REACTIONS (4)
  - Blood thyroid stimulating hormone increased [Unknown]
  - Drug dose omission [Unknown]
  - Fatigue [Unknown]
  - Constipation [Unknown]
